FAERS Safety Report 5518124-4 (Version None)
Quarter: 2007Q4

REPORT INFORMATION
  Report Type: 
  Country: None (occurrence: None)
  Receive Date: 20071113
  Receipt Date: 20071113
  Transmission Date: 20080405
  Serious: Yes (Death, Hospitalization)
  Sender: FDA-Public Use
  Company Number: None

PATIENT
  Sex: Female
  Weight: 57.9 kg

DRUGS (1)
  1. IRESSA [Suspect]
     Indication: OESOPHAGEAL CARCINOMA
     Dosage: 750MG PO QD
     Route: 048
     Dates: start: 20070508, end: 20071110

REACTIONS (4)
  - ATRIAL FIBRILLATION [None]
  - HYPOXIA [None]
  - PNEUMONIA [None]
  - TACHYPNOEA [None]
